FAERS Safety Report 19904377 (Version 7)
Quarter: 2022Q2

REPORT INFORMATION
  Report Type: Spontaneous
  Country: US (occurrence: US)
  Receive Date: 20211001
  Receipt Date: 20220531
  Transmission Date: 20220721
  Serious: Yes (Hospitalization, Other)
  Sender: FDA-Public Use
  Company Number: US-UNITED THERAPEUTICS-UNT-2021-019485

PATIENT
  Sex: Female
  Weight: 78.458 kg

DRUGS (4)
  1. REMODULIN [Suspect]
     Active Substance: TREPROSTINIL
     Indication: Pulmonary arterial hypertension
     Dosage: UNK, CONTINUING
     Route: 058
     Dates: start: 20150903
  2. REMODULIN [Suspect]
     Active Substance: TREPROSTINIL
     Dosage: 0.084 ?G/KG, CONTINUING
     Route: 058
  3. REMODULIN [Suspect]
     Active Substance: TREPROSTINIL
     Dosage: UNK, CONTINUING
     Route: 058
  4. REMODULIN [Suspect]
     Active Substance: TREPROSTINIL
     Dosage: UNK, CONTINUING
     Route: 058

REACTIONS (22)
  - Haemorrhage [Unknown]
  - Head injury [Unknown]
  - Weight bearing difficulty [Unknown]
  - Neoplasm malignant [Unknown]
  - Fall [Recovered/Resolved with Sequelae]
  - Thinking abnormal [Unknown]
  - Post procedural complication [Unknown]
  - Nausea [Not Recovered/Not Resolved]
  - Vomiting [Not Recovered/Not Resolved]
  - Diarrhoea [Not Recovered/Not Resolved]
  - Decreased appetite [Unknown]
  - Weight decreased [Unknown]
  - Rhinorrhoea [Not Recovered/Not Resolved]
  - Sneezing [Not Recovered/Not Resolved]
  - Dermatitis contact [Unknown]
  - Migraine [Unknown]
  - Muscle spasms [Unknown]
  - Arthralgia [Unknown]
  - Impaired healing [Unknown]
  - Hypoaesthesia [Unknown]
  - Device alarm issue [Not Recovered/Not Resolved]
  - Mental disorder [Unknown]

NARRATIVE: CASE EVENT DATE: 20190101
